FAERS Safety Report 18527927 (Version 4)
Quarter: 2020Q4

REPORT INFORMATION
  Report Type: Spontaneous
  Country: US (occurrence: US)
  Receive Date: 20201120
  Receipt Date: 20201211
  Transmission Date: 20210114
  Serious: No
  Sender: FDA-Public Use
  Company Number: US-PFIZER INC-2020456441

PATIENT
  Age: 40 Year
  Sex: Female

DRUGS (2)
  1. DEPO-PROVERA [Suspect]
     Active Substance: MEDROXYPROGESTERONE ACETATE
     Dosage: 104 MG, 65ML, EVERY 3 MONTHS (104 MG, 65 ML STRENGTH)
     Route: 058
     Dates: start: 20201112
  2. DEPO-PROVERA [Suspect]
     Active Substance: MEDROXYPROGESTERONE ACETATE
     Indication: ENDOMETRIOSIS
     Dosage: 104 MG, 65ML, EVERY 3 MONTHS (104 MG, 65 ML STRENGTH)
     Route: 058
     Dates: start: 2001

REACTIONS (6)
  - Abdominal pain upper [Unknown]
  - Product administered by wrong person [Unknown]
  - Needle issue [Unknown]
  - Device leakage [Unknown]
  - Pain [Unknown]
  - Incorrect dose administered by device [Unknown]

NARRATIVE: CASE EVENT DATE: 2015
